FAERS Safety Report 19715090 (Version 1)
Quarter: 2021Q3

REPORT INFORMATION
  Report Type: Spontaneous
  Country: JP (occurrence: JP)
  Receive Date: 20210818
  Receipt Date: 20210818
  Transmission Date: 20211014
  Serious: Yes (Other)
  Sender: FDA-Public Use
  Company Number: JP-LUPIN PHARMACEUTICALS INC.-2021-15035

PATIENT
  Age: 12 Year
  Sex: Male
  Weight: 46 kg

DRUGS (5)
  1. MIZORIBINE [Concomitant]
     Active Substance: MIZORIBINE
     Indication: IGA NEPHROPATHY
     Dosage: 150 MILLIGRAM
     Route: 065
  2. METHYLPREDNISOLONE. [Suspect]
     Active Substance: METHYLPREDNISOLONE
     Indication: IGA NEPHROPATHY
     Dosage: 1 GRAM FOR 3 DAYS (CYCLE 1)
     Route: 042
  3. DIPYRIDAMOLE. [Interacting]
     Active Substance: DIPYRIDAMOLE
     Indication: ANTIPLATELET THERAPY
     Dosage: 300 MILLIGRAM
     Route: 065
  4. HEPARIN [Concomitant]
     Active Substance: HEPARIN SODIUM
     Indication: PRODUCT USED FOR UNKNOWN INDICATION
     Dosage: UNK 10 UNIT/KG/H
     Route: 065
  5. PREDNISOLONE. [Concomitant]
     Active Substance: PREDNISOLONE
     Indication: IGA NEPHROPATHY
     Dosage: 40 MILLIGRAM
     Route: 065

REACTIONS (3)
  - Myocardial ischaemia [Recovered/Resolved]
  - Hypertension [Recovered/Resolved]
  - Drug interaction [Unknown]
